FAERS Safety Report 6595136-3 (Version None)
Quarter: 2010Q1

REPORT INFORMATION
  Report Type: 
  Country: None (occurrence: None)
  Receive Date: 20100212
  Receipt Date: 20100201
  Transmission Date: 20100710
  Serious: Yes (Hospitalization)
  Sender: FDA-Public Use
  Company Number: TCI2003A02858

PATIENT
  Age: 67 Year
  Sex: Female

DRUGS (9)
  1. TAKEPRON CAPSULES 15 (LANSOPRAZOLE) [Suspect]
     Indication: REFLUX OESOPHAGITIS
     Dosage: 30 MG (30 MG, 1 D) PER ORAL; 15 MG (15 MG, 1 IN 1 D) PER ORAL
     Route: 048
     Dates: start: 20020901, end: 20021001
  2. TAKEPRON CAPSULES 15 (LANSOPRAZOLE) [Suspect]
     Indication: REFLUX OESOPHAGITIS
     Dosage: 30 MG (30 MG, 1 D) PER ORAL; 15 MG (15 MG, 1 IN 1 D) PER ORAL
     Route: 048
     Dates: start: 20021001, end: 20030121
  3. ACECOL (TEMOCAPRIL HYDROCHLORIDE) [Concomitant]
  4. DILTIAZEM HYDROCHLORIDE [Concomitant]
  5. MAGNESIUM OXIDE [Concomitant]
  6. FULITRAN (TRICHLORMETHIAZIDE) [Concomitant]
  7. TRIAZOLAM [Concomitant]
  8. ENALAPRIL MALEATE [Concomitant]
  9. TOLEDOMIN (MILNACIPRAN HYDROCHLORIDE) [Concomitant]

REACTIONS (4)
  - COLITIS COLLAGENOUS [None]
  - LARGE INTESTINAL ULCER [None]
  - PANCYTOPENIA [None]
  - WEIGHT DECREASED [None]
